FAERS Safety Report 10213900 (Version 2)
Quarter: 2014Q3

REPORT INFORMATION
  Report Type: Spontaneous
  Country: AU (occurrence: AU)
  Receive Date: 20140603
  Receipt Date: 20140701
  Transmission Date: 20150326
  Serious: Yes (Other)
  Sender: FDA-Public Use
  Company Number: AU-ASTRAZENECA-2014SE36860

PATIENT
  Sex: Female

DRUGS (2)
  1. UNSPECIFIED [Concomitant]
     Active Substance: UNSPECIFIED INGREDIENT
  2. SEROQUEL [Suspect]
     Active Substance: QUETIAPINE FUMARATE
     Indication: MENTAL DISORDER
     Route: 048

REACTIONS (3)
  - Off label use [Unknown]
  - Gastrointestinal injury [Unknown]
  - Constipation [Unknown]
